FAERS Safety Report 7239180-1 (Version None)
Quarter: 2011Q1

REPORT INFORMATION
  Report Type: 
  Country: None (occurrence: None)
  Receive Date: 20110121
  Receipt Date: 20081103
  Transmission Date: 20110831
  Serious: Yes (Hospitalization, Other)
  Sender: FDA-Public Use
  Company Number: PHHY2008GB37374

PATIENT
  Age: 61 Year
  Sex: Male

DRUGS (8)
  1. PREDNISOLONE [Concomitant]
     Dosage: 10MG DAILY
  2. GANCICLOVIR [Concomitant]
     Route: 042
  3. HYDRATHION [Concomitant]
  4. ANTIBIOTICS [Concomitant]
  5. DACLIZUMAB [Concomitant]
     Indication: RENAL TRANSPLANT
  6. NEORAL [Suspect]
     Indication: RENAL TRANSPLANT
  7. CELLCEPT [Concomitant]
     Indication: RENAL TRANSPLANT
     Dosage: L G TWICE DAILY
  8. MYCOPHENOLATE SODIUM [Concomitant]

REACTIONS (17)
  - DIARRHOEA [None]
  - THROMBOCYTOPENIA [None]
  - LIVER FUNCTION TEST ABNORMAL [None]
  - CYTOMEGALOVIRUS COLITIS [None]
  - METABOLIC ACIDOSIS [None]
  - CYTOMEGALOVIRUS TEST POSITIVE [None]
  - KIDNEY TRANSPLANT REJECTION [None]
  - RENAL FAILURE ACUTE [None]
  - INFLAMMATION [None]
  - WEIGHT DECREASED [None]
  - ABDOMINAL TENDERNESS [None]
  - RENAL CYST [None]
  - POLYCYSTIC LIVER DISEASE [None]
  - VASCULITIS [None]
  - DEHYDRATION [None]
  - FATIGUE [None]
  - HYPOTENSION [None]
